FAERS Safety Report 13640831 (Version 1)
Quarter: 2017Q2

REPORT INFORMATION
  Report Type: Spontaneous
  Country: SG (occurrence: SG)
  Receive Date: 20170612
  Receipt Date: 20170612
  Transmission Date: 20170830
  Serious: Yes (Disabling)
  Sender: FDA-Public Use
  Company Number: SG-ASTRAZENECA-2017SE60285

PATIENT
  Age: 54 Year
  Sex: Female

DRUGS (1)
  1. TAGRISSO [Suspect]
     Active Substance: OSIMERTINIB
     Indication: NON-SMALL CELL LUNG CANCER
     Route: 048
     Dates: start: 20160806, end: 20170506

REACTIONS (2)
  - Mouth ulceration [Unknown]
  - Pharyngeal ulceration [Unknown]
